FAERS Safety Report 10596702 (Version 1)
Quarter: 2014Q4

REPORT INFORMATION
  Report Type: Spontaneous
  Country: US (occurrence: US)
  Receive Date: 20141120
  Receipt Date: 20141120
  Transmission Date: 20150529
  Serious: Yes (Hospitalization)
  Sender: FDA-Public Use
  Company Number: US-ASTRAZENECA-2014SE86127

PATIENT
  Age: 71 Year
  Sex: Female
  Weight: 78 kg

DRUGS (1)
  1. NEXIUM [Suspect]
     Active Substance: ESOMEPRAZOLE MAGNESIUM
     Route: 048
     Dates: start: 2003, end: 2009

REACTIONS (3)
  - Drug dose omission [Unknown]
  - Gastrooesophageal reflux disease [Unknown]
  - Cardiac disorder [Unknown]

NARRATIVE: CASE EVENT DATE: 2009
